FAERS Safety Report 7269413-7 (Version None)
Quarter: 2011Q1

REPORT INFORMATION
  Report Type: 
  Country: None (occurrence: None)
  Receive Date: 20110202
  Receipt Date: 20110125
  Transmission Date: 20110831
  Serious: Yes (Death, Hospitalization)
  Sender: FDA-Public Use
  Company Number: CN-BAYER-2010-008707

PATIENT
  Sex: Female
  Weight: 74 kg

DRUGS (4)
  1. ESSENTIALE [VITAMINS NOS] [Concomitant]
     Indication: PROPHYLAXIS
     Dosage: DAILY DOSE 1368 MG
     Route: 048
     Dates: start: 20101206, end: 20101224
  2. ADEMETIONINE [Concomitant]
     Indication: PROPHYLAXIS
     Dosage: DAILY DOSE 2 G
     Route: 048
     Dates: start: 20101206, end: 20101224
  3. SORAFENIB (RAF KINASE INHIBITOR) [Suspect]
     Dosage: 400 MG, QD
     Dates: start: 20101106, end: 20101206
  4. SORAFENIB (RAF KINASE INHIBITOR) [Suspect]
     Indication: HEPATIC NEOPLASM MALIGNANT
     Dosage: 400 MG, BID
     Dates: start: 20100907, end: 20101106

REACTIONS (1)
  - HEPATIC FUNCTION ABNORMAL [None]
